FAERS Safety Report 6468970-8 (Version None)
Quarter: 2009Q4

REPORT INFORMATION
  Report Type: 
  Country: None (occurrence: None)
  Receive Date: 20091201
  Receipt Date: 20091117
  Transmission Date: 20100525
  Serious: Yes (Other)
  Sender: FDA-Public Use
  Company Number: 20090539

PATIENT
  Sex: Female

DRUGS (1)
  1. VENOFER [Suspect]

REACTIONS (5)
  - ABDOMINAL PAIN [None]
  - BRADYCARDIA [None]
  - CHILLS [None]
  - CIRCULATORY COLLAPSE [None]
  - PYREXIA [None]
